FAERS Safety Report 8777705 (Version 1)
Quarter: 2012Q4

REPORT INFORMATION
  Report Type: 
  Country: FR (occurrence: FR)
  Receive Date: 20120910
  Receipt Date: 20120910
  Transmission Date: 20130627
  Serious: Yes (Hospitalization, Other)
  Sender: FDA-Public Use
  Company Number: FR-PFIZER INC-2012219566

PATIENT
  Age: 78 Year
  Sex: Male

DRUGS (4)
  1. SOLU-MEDROL [Suspect]
     Indication: PREMEDICATION
     Dosage: single
     Route: 042
     Dates: start: 20120712, end: 20120712
  2. SOLU-MEDROL [Suspect]
     Dosage: single
     Route: 042
     Dates: start: 20120801, end: 20120801
  3. SOLU-MEDROL [Suspect]
     Dosage: single
     Route: 042
     Dates: start: 20120822, end: 20120822
  4. SOLU-MEDROL [Suspect]
     Dosage: single
     Route: 042
     Dates: start: 20120829, end: 20120829

REACTIONS (6)
  - Thrombocytopenia [Recovered/Resolved]
  - Thrombocytopenic purpura [Unknown]
  - Dermatitis exfoliative [Unknown]
  - Hypertension [Unknown]
  - Pyrexia [Unknown]
  - Chills [Unknown]
